FAERS Safety Report 5712139-9 (Version None)
Quarter: 2008Q2

REPORT INFORMATION
  Report Type: 
  Country: None (occurrence: None)
  Receive Date: 20080417
  Receipt Date: 20080406
  Transmission Date: 20081010
  Serious: Yes (Hospitalization)
  Sender: FDA-Public Use
  Company Number: CERZ-11883

PATIENT
  Age: 23 Year
  Sex: Female
  Weight: 56.8 kg

DRUGS (4)
  1. CEREZYME [Suspect]
     Indication: GAUCHER'S DISEASE
     Dosage: 3180 U, Q2W, INTRAVENOUS
     Route: 042
     Dates: start: 20050615, end: 20070628
  2. ALLEGRA [Concomitant]
  3. SYNTHROID [Concomitant]
  4. LEXAPRIL [Concomitant]

REACTIONS (12)
  - ACTIVITIES OF DAILY LIVING IMPAIRED [None]
  - ANXIETY [None]
  - BLOOD PRESSURE INCREASED [None]
  - DIZZINESS [None]
  - DYSPNOEA [None]
  - FEELING ABNORMAL [None]
  - GAIT DISTURBANCE [None]
  - GASTRITIS [None]
  - HEADACHE [None]
  - SPLENOMEGALY [None]
  - TREMOR [None]
  - VISUAL DISTURBANCE [None]
